FAERS Safety Report 7763943-7 (Version None)
Quarter: 2011Q3

REPORT INFORMATION
  Report Type: 
  Country: None (occurrence: None)
  Receive Date: 20110921
  Receipt Date: 20110908
  Transmission Date: 20111222
  Serious: Yes (Hospitalization, Other)
  Sender: FDA-Public Use
  Company Number: US-ELI_LILLY_AND_COMPANY-US200803004081

PATIENT
  Sex: Female

DRUGS (14)
  1. NIACIN [Concomitant]
     Dosage: UNK
  2. AMBIEN [Concomitant]
     Dosage: UNK
  3. ASPIRIN [Concomitant]
     Dosage: UNK
  4. ADVIL LIQUI-GELS [Concomitant]
     Dosage: 3 D/F, DAILY (1/D)
  5. FISH OIL [Concomitant]
     Dosage: UNK
  6. VITAMIN TAB [Concomitant]
     Dosage: UNK
  7. TYLENOL-500 [Concomitant]
     Dosage: 2 D/F, 2/D
  8. ADVICOR [Concomitant]
     Dosage: 500 MG, UNK
  9. CITRUCEL [Concomitant]
     Dosage: UNK
  10. FORTEO [Suspect]
     Indication: OSTEOPOROSIS
     Dosage: UNK
     Dates: start: 20080201, end: 20090101
  11. FORTEO [Suspect]
     Dosage: 20 UG, QD
  12. METENIX 5 [Concomitant]
     Dosage: UNK
  13. FORTEO [Suspect]
     Dosage: 20 UG, QD
     Route: 065
  14. SYNTHROID [Concomitant]

REACTIONS (9)
  - INJECTION SITE HAEMATOMA [None]
  - DRUG DOSE OMISSION [None]
  - FALL [None]
  - MEMORY IMPAIRMENT [None]
  - ENCEPHALITIS [None]
  - HEADACHE [None]
  - UNRESPONSIVE TO STIMULI [None]
  - HIP FRACTURE [None]
  - DYSARTHRIA [None]
